FAERS Safety Report 6772214-7 (Version None)
Quarter: 2010Q2

REPORT INFORMATION
  Report Type: 
  Country: None (occurrence: None)
  Receive Date: 20100616
  Receipt Date: 20100604
  Transmission Date: 20101027
  Serious: Yes (Hospitalization, Other)
  Sender: FDA-Public Use
  Company Number: US-JNJFOC-20100602175

PATIENT
  Sex: Male
  Weight: 51.5 kg

DRUGS (9)
  1. REMICADE [Suspect]
     Indication: CROHN'S DISEASE
     Route: 042
  2. REMICADE [Suspect]
     Dosage: INDUCTION
     Route: 042
  3. REMICADE [Suspect]
     Dosage: SECOND DOSE
     Route: 042
  4. REMICADE [Suspect]
     Dosage: THIRD DOSE
     Route: 042
  5. 5-ASA [Concomitant]
     Route: 048
  6. MERCAPTOPURINE [Concomitant]
  7. METRONIDAZOLE [Concomitant]
  8. AMOXICILLIN [Concomitant]
  9. PENTASA [Concomitant]
     Route: 048

REACTIONS (2)
  - BACTERIAL INFECTION [None]
  - CROHN'S DISEASE [None]
